FAERS Safety Report 4810374-5 (Version None)
Quarter: 2005Q4

REPORT INFORMATION
  Report Type: 
  Country: None (occurrence: None)
  Receive Date: 20051024
  Receipt Date: 20051014
  Transmission Date: 20060501
  Serious: Yes (Other)
  Sender: FDA-Public Use
  Company Number: 2005-10-0383

PATIENT
  Sex: Male

DRUGS (3)
  1. CELESTONE SOLUSPAN [Suspect]
     Indication: PAIN MANAGEMENT
     Dosage: EPIDURAL
     Route: 008
  2. THERAPEUTIC AGENT [Suspect]
     Indication: PAIN
     Dosage: EPIDURAL
     Route: 008
  3. . [Concomitant]

REACTIONS (6)
  - ARACHNOIDITIS [None]
  - CRYING [None]
  - DRUG INEFFECTIVE [None]
  - EMOTIONAL DISORDER [None]
  - INJECTION SITE REACTION [None]
  - MALAISE [None]
